FAERS Safety Report 8260609-4 (Version None)
Quarter: 2012Q2

REPORT INFORMATION
  Report Type: 
  Country: None (occurrence: None)
  Receive Date: 20120404
  Receipt Date: 20120315
  Transmission Date: 20120825
  Serious: Yes (Death, Hospitalization)
  Sender: FDA-Public Use
  Company Number: PH-BAXTER-2012BAX000042

PATIENT
  Sex: Female

DRUGS (1)
  1. DIANEAL PD-2 W/ DEXTROSE 1.5% [Suspect]
     Dosage: UNKNOWN
     Route: 033
     Dates: start: 20120313, end: 20120315

REACTIONS (2)
  - CARDIAC ARREST [None]
  - DENGUE FEVER [None]
